FAERS Safety Report 14608424 (Version 1)
Quarter: 2018Q1

REPORT INFORMATION
  Report Type: Report from Study
  Country: AU (occurrence: AU)
  Receive Date: 20180307
  Receipt Date: 20180307
  Transmission Date: 20180509
  Serious: Yes (Hospitalization)
  Sender: FDA-Public Use
  Company Number: AU-TOLMAR, INC.-2017AU011695

PATIENT
  Sex: Male

DRUGS (1)
  1. ELIGARD [Suspect]
     Active Substance: LEUPROLIDE ACETATE
     Indication: PROSTATE CANCER
     Dosage: 22.5 MG, Q3MONTHS
     Route: 065
     Dates: start: 20170310

REACTIONS (9)
  - Abdominal distension [Unknown]
  - Dyspnoea exertional [Unknown]
  - Constipation [Unknown]
  - Chest injury [Unknown]
  - Hepatic cirrhosis [Unknown]
  - Back pain [Unknown]
  - Ascites [Not Recovered/Not Resolved]
  - Fall [Unknown]
  - Musculoskeletal pain [Unknown]

NARRATIVE: CASE EVENT DATE: 2017
